FAERS Safety Report 6318191-4 (Version None)
Quarter: 2009Q3

REPORT INFORMATION
  Report Type: 
  Country: None (occurrence: None)
  Receive Date: 20090821
  Receipt Date: 20090817
  Transmission Date: 20100115
  Serious: Yes (Other)
  Sender: FDA-Public Use
  Company Number: B0585239A

PATIENT
  Sex: Male

DRUGS (1)
  1. AVAMYS [Suspect]
     Dosage: 2SPR PER DAY
     Route: 045
     Dates: start: 20090401, end: 20090713

REACTIONS (2)
  - EPISTAXIS [None]
  - RHINITIS [None]
